FAERS Safety Report 16048286 (Version 2)
Quarter: 2019Q1

REPORT INFORMATION
  Report Type: Spontaneous
  Country: US (occurrence: US)
  Receive Date: 20190307
  Receipt Date: 20190318
  Transmission Date: 20190418
  Serious: Yes (Hospitalization)
  Sender: FDA-Public Use
  Company Number: US-ASTRAZENECA-2019SE34964

PATIENT
  Sex: Male

DRUGS (2)
  1. TOPAMAX [Interacting]
     Active Substance: TOPIRAMATE
     Route: 065
  2. BRILINTA [Suspect]
     Active Substance: TICAGRELOR
     Indication: ACUTE CORONARY SYNDROME
     Route: 048

REACTIONS (3)
  - Drug interaction [Recovered/Resolved]
  - Vascular stent thrombosis [Unknown]
  - Myocardial infarction [Recovered/Resolved]
